FAERS Safety Report 6571029-2 (Version None)
Quarter: 2010Q1

REPORT INFORMATION
  Report Type: 
  Country: None (occurrence: None)
  Receive Date: 20100204
  Receipt Date: 20100127
  Transmission Date: 20100710
  Serious: Yes (Hospitalization)
  Sender: FDA-Public Use
  Company Number: DE-NOVOPROD-301371

PATIENT
  Sex: Female
  Weight: 91.9 kg

DRUGS (8)
  1. LIRAGLUTIDE FLEXPEN [Suspect]
     Indication: TYPE 2 DIABETES MELLITUS
     Dosage: 1.8 MG/ML DAILY
     Route: 058
     Dates: start: 20090609
  2. METFORMIN HCL [Concomitant]
     Indication: TYPE 2 DIABETES MELLITUS
     Dosage: 1700 MG, UNK
     Route: 048
     Dates: start: 20050101
  3. VALSARTAN [Concomitant]
     Dosage: UNK
     Route: 048
     Dates: start: 20090828
  4. AMLODIPIN                          /00972401/ [Concomitant]
     Dosage: UNK
     Route: 048
     Dates: start: 20090325
  5. METOPROLOL TARTRATE [Concomitant]
     Dosage: UNK
     Route: 048
     Dates: start: 20060701
  6. HYDROCHLOROTHIAZIDE [Concomitant]
     Dosage: UNK
     Route: 048
     Dates: start: 20060701
  7. IBUPROFEN [Concomitant]
     Dosage: UNK
     Route: 048
     Dates: start: 20070101
  8. GLIMEPIRIDE [Concomitant]
     Dosage: 1 MG, UNK
     Dates: start: 20060301, end: 20090609

REACTIONS (1)
  - POLYMYALGIA RHEUMATICA [None]
